FAERS Safety Report 7469272-3 (Version None)
Quarter: 2011Q2

REPORT INFORMATION
  Report Type: 
  Country: None (occurrence: None)
  Receive Date: 20110429
  Receipt Date: 20110414
  Transmission Date: 20111010
  Serious: Yes (Hospitalization, Other)
  Sender: FDA-Public Use
  Company Number: AUR-APL-2010-02138

PATIENT
  Age: 70 Year
  Sex: Male
  Weight: 75 kg

DRUGS (11)
  1. METFORMIN HCL [Concomitant]
  2. EPLERENONE [Suspect]
     Indication: CARDIAC FAILURE
     Dosage: ORAL
     Route: 048
     Dates: start: 20081006, end: 20090625
  3. SPIRIVA [Concomitant]
  4. ISOSORBIDE MONONITRATE [Concomitant]
  5. METOPROLOL TARTRATE [Suspect]
     Dates: end: 20090626
  6. EFFEXOR [Concomitant]
  7. VALSARTAN [Concomitant]
  8. LISINOPRIL [Suspect]
     Dosage: ORAL
     Route: 048
     Dates: end: 20090626
  9. FUROSEMIDE [Suspect]
     Dosage: 80MG, BID, ORAL
     Route: 048
     Dates: start: 20080201, end: 20090625
  10. ASPIRIN [Concomitant]
  11. THYRAX [Concomitant]

REACTIONS (5)
  - CONDITION AGGRAVATED [None]
  - MALAISE [None]
  - DEHYDRATION [None]
  - CARDIAC FAILURE [None]
  - RENAL IMPAIRMENT [None]
